FAERS Safety Report 5282078-9 (Version None)
Quarter: 2007Q1

REPORT INFORMATION
  Report Type: 
  Country: None (occurrence: None)
  Receive Date: 20070330
  Receipt Date: 20070319
  Transmission Date: 20070707
  Serious: Yes (Hospitalization)
  Sender: FDA-Public Use
  Company Number: US-PFIZER INC-2005157057

PATIENT
  Sex: Female

DRUGS (11)
  1. NEURONTIN [Suspect]
     Indication: SCIATICA
  2. NEURONTIN [Suspect]
     Indication: NEUROPATHY PERIPHERAL
  3. NEURONTIN [Suspect]
     Indication: RESTLESS LEGS SYNDROME
  4. INSULIN [Suspect]
     Route: 042
  5. ZOLOFT [Suspect]
  6. SPIRONOLACTONE TABLET [Suspect]
  7. DIAZEPAM [Suspect]
  8. AMBIEN [Suspect]
  9. ROXICODONE [Concomitant]
  10. HYDROCODONE [Concomitant]
  11. CYCLOBENZAPRINE HCL [Concomitant]

REACTIONS (10)
  - ANOXIC ENCEPHALOPATHY [None]
  - COGNITIVE DISORDER [None]
  - COMA [None]
  - DRUG INEFFECTIVE [None]
  - HYPOGLYCAEMIA [None]
  - MULTIPLE DRUG OVERDOSE [None]
  - PERONEAL NERVE PALSY [None]
  - PNEUMONIA ASPIRATION [None]
  - SCIATIC NERVE INJURY [None]
  - SUICIDE ATTEMPT [None]
